FAERS Safety Report 7337386-4 (Version None)
Quarter: 2011Q1

REPORT INFORMATION
  Report Type: 
  Country: None (occurrence: None)
  Receive Date: 20110308
  Receipt Date: 20110308
  Transmission Date: 20110831
  Serious: No
  Sender: FDA-Public Use
  Company Number: None

PATIENT
  Age: 67 Year
  Sex: Female
  Weight: 95.2554 kg

DRUGS (1)
  1. TRIAD ALCOHOL PREP PAD [Suspect]
     Dosage: ONCE DAILY 01/13/20
     Dates: start: 20110110, end: 20110110

REACTIONS (2)
  - INJECTION SITE DISCOLOURATION [None]
  - CELLULITIS [None]
